FAERS Safety Report 8172907-3 (Version None)
Quarter: 2012Q1

REPORT INFORMATION
  Report Type: 
  Country: None (occurrence: None)
  Receive Date: 20120223
  Receipt Date: 20120207
  Transmission Date: 20120608
  Serious: Yes (Death, Hospitalization)
  Sender: FDA-Public Use
  Company Number: UTC-015350

PATIENT
  Age: 52 Year
  Sex: Male

DRUGS (1)
  1. REMODULIN [Suspect]
     Indication: PULMONARY ARTERY WALL HYPERTROPHY
     Dosage: 20 UG/KG/MIN,INTRAVENOUS
     Route: 042
     Dates: start: 20100202

REACTIONS (11)
  - MALAISE [None]
  - MYALGIA [None]
  - PAIN [None]
  - REFUSAL OF TREATMENT BY PATIENT [None]
  - DECREASED APPETITE [None]
  - CHEST DISCOMFORT [None]
  - LETHARGY [None]
  - FATIGUE [None]
  - SECRETION DISCHARGE [None]
  - SOMNOLENCE [None]
  - HEADACHE [None]
